FAERS Safety Report 12526523 (Version 7)
Quarter: 2020Q1

REPORT INFORMATION
  Report Type: Report from Study
  Country: JP (occurrence: JP)
  Receive Date: 20160705
  Receipt Date: 20200324
  Transmission Date: 20200409
  Serious: Yes (Hospitalization)
  Sender: FDA-Public Use
  Company Number: JP-ACTELION-A-CH2012-67937

PATIENT
  Age: 13 Year
  Sex: Male

DRUGS (31)
  1. ZAVESCA [Suspect]
     Active Substance: MIGLUSTAT
     Dosage: 100 MG, BID
     Route: 048
     Dates: start: 20190109, end: 20190129
  2. EXCEGRAN [Concomitant]
     Active Substance: ZONISAMIDE
  3. ALEVIATIN [Concomitant]
     Active Substance: PHENYTOIN SODIUM
  4. MYSTAN [Concomitant]
     Active Substance: CLOBAZAM
  5. WAKOBITAL [Concomitant]
  6. ZAVESCA [Suspect]
     Active Substance: MIGLUSTAT
     Indication: NIEMANN-PICK DISEASE
     Dosage: 100 MG, TID
     Route: 048
     Dates: start: 20120621, end: 20121022
  7. ZAVESCA [Suspect]
     Active Substance: MIGLUSTAT
     Dosage: 100 MG, BID
     Route: 048
     Dates: start: 20171226, end: 20180911
  8. ANAFRANIL [Concomitant]
     Active Substance: CLOMIPRAMINE HYDROCHLORIDE
  9. ALFACALCIDOL [Concomitant]
     Active Substance: ALFACALCIDOL
  10. FYCOMPA [Concomitant]
     Active Substance: PERAMPANEL
  11. ZAVESCA [Suspect]
     Active Substance: MIGLUSTAT
     Dosage: 100 MG, TID
     Route: 048
     Dates: start: 20160524, end: 20160605
  12. ZAVESCA [Suspect]
     Active Substance: MIGLUSTAT
     Dosage: 100 MG, TID
     Route: 048
     Dates: start: 20190925
  13. ZAVESCA [Suspect]
     Active Substance: MIGLUSTAT
     Dosage: 100 MG, TID
     Route: 048
     Dates: start: 20140710, end: 20150317
  14. ZAVESCA [Suspect]
     Active Substance: MIGLUSTAT
     Dosage: 100 MG, BID
     Route: 048
     Dates: start: 20160517, end: 20160523
  15. PIPERACILLIN AND TAZOBACTAM [Suspect]
     Active Substance: PIPERACILLIN SODIUM\TAZOBACTAM SODIUM
     Indication: BRONCHITIS
     Dosage: UNK
     Route: 042
     Dates: start: 20181105, end: 20181119
  16. ONON [Concomitant]
     Active Substance: PRANLUKAST
     Dosage: UNK
  17. DIAPP [Concomitant]
     Active Substance: DIAZEPAM
  18. DEPAKENE [Concomitant]
     Active Substance: VALPROIC ACID
  19. TOPINA [Concomitant]
     Active Substance: TOPIRAMATE
  20. PHENOBARBITAL. [Concomitant]
     Active Substance: PHENOBARBITAL
  21. ZAVESCA [Suspect]
     Active Substance: MIGLUSTAT
     Dosage: 100 MG, BID
     Route: 048
     Dates: start: 20170703, end: 20170709
  22. ZAVESCA [Suspect]
     Active Substance: MIGLUSTAT
     Dosage: 100 MG, TID
     Route: 048
     Dates: start: 20180912, end: 20181126
  23. ZAVESCA [Suspect]
     Active Substance: MIGLUSTAT
     Dosage: 100 MG, BID
     Route: 048
     Dates: start: 20121023, end: 20140709
  24. ZAVESCA [Suspect]
     Active Substance: MIGLUSTAT
     Dosage: 100 MG, QD
     Route: 048
     Dates: start: 20160510, end: 20160516
  25. ZAVESCA [Suspect]
     Active Substance: MIGLUSTAT
     Dosage: 200 MG, BID
     Route: 048
     Dates: start: 20170710, end: 20171225
  26. ZAVESCA [Suspect]
     Active Substance: MIGLUSTAT
     Dosage: 100 MG, QD
     Route: 048
     Dates: start: 20190130, end: 20190716
  27. DIAZEPAM. [Concomitant]
     Active Substance: DIAZEPAM
  28. VIMPAT [Concomitant]
     Active Substance: LACOSAMIDE
  29. E KEPPRA [Concomitant]
     Active Substance: LEVETIRACETAM
  30. ZAVESCA [Suspect]
     Active Substance: MIGLUSTAT
     Dosage: 200 MG, BID
     Route: 048
     Dates: start: 20150318, end: 20160304
  31. ZAVESCA [Suspect]
     Active Substance: MIGLUSTAT
     Dosage: 200 MG, BID
     Route: 048
     Dates: start: 20160606, end: 20170522

REACTIONS (5)
  - Bronchitis [Recovered/Resolved]
  - Constipation [Recovering/Resolving]
  - Malnutrition [Recovering/Resolving]
  - Diarrhoea [Recovering/Resolving]
  - Gastroenteritis [Recovering/Resolving]

NARRATIVE: CASE EVENT DATE: 20120622
